FAERS Safety Report 9276285 (Version 1)
Quarter: 2013Q2

REPORT INFORMATION
  Report Type: Report from Study
  Country: GB (occurrence: GB)
  Receive Date: 20130507
  Receipt Date: 20130507
  Transmission Date: 20140414
  Serious: Yes (Other)
  Sender: FDA-Public Use
  Company Number: PHHO2013GB006081

PATIENT
  Age: 71 Year
  Sex: Male

DRUGS (3)
  1. ZOLEDRONATE [Suspect]
     Indication: PROSTATE CANCER
     Dosage: 4MG, EVERY 3 WEEKS FOR THE FIRST 6 CYCLES THAN EVERY 4 WEEKS
     Route: 042
     Dates: start: 20111128, end: 20130103
  2. DOCETAXEL [Suspect]
     Indication: METASTASES TO BONE
     Dosage: 125 MG, UNK
     Route: 042
     Dates: start: 20111128, end: 20120313
  3. LEUPRORELIN ACETATE [Concomitant]
     Dosage: 1125 MG, UNK
     Route: 058
     Dates: start: 20110930, end: 20130219

REACTIONS (1)
  - Osteonecrosis of jaw [Not Recovered/Not Resolved]
